FAERS Safety Report 5430772-9 (Version None)
Quarter: 2007Q3

REPORT INFORMATION
  Report Type: 
  Country: None (occurrence: None)
  Receive Date: 20070830
  Receipt Date: 20061115
  Transmission Date: 20080115
  Serious: No
  Sender: FDA-Public Use
  Company Number: A0627711A

PATIENT
  Sex: Male

DRUGS (5)
  1. WELLBUTRIN [Suspect]
     Indication: DRUG USE FOR UNKNOWN INDICATION
     Route: 048
  2. LEXAPRO [Concomitant]
     Dosage: 10MG UNKNOWN
     Route: 048
  3. SYNTHROID [Concomitant]
     Dosage: 150MCG UNKNOWN
     Route: 048
  4. VITAMIN [Concomitant]
  5. ALEVE [Concomitant]
     Dosage: 2TAB IN THE MORNING
     Route: 048

REACTIONS (1)
  - DRUG ADMINISTRATION ERROR [None]
